FAERS Safety Report 14783969 (Version 2)
Quarter: 2019Q1

REPORT INFORMATION
  Report Type: Spontaneous
  Country: US (occurrence: US)
  Receive Date: 20180420
  Receipt Date: 20190330
  Transmission Date: 20190417
  Serious: Yes (Death, Hospitalization, Other)
  Sender: FDA-Public Use
  Company Number: US-GLAXOSMITHKLINE-US2018GSK068959

PATIENT
  Sex: Male

DRUGS (2)
  1. PREVACID [Suspect]
     Active Substance: LANSOPRAZOLE
     Indication: PRODUCT USED FOR UNKNOWN INDICATION
     Dosage: UNK
     Route: 065
  2. PREVACID [Suspect]
     Active Substance: LANSOPRAZOLE
     Indication: GASTROOESOPHAGEAL REFLUX DISEASE
     Dosage: 30 MG, QD
     Route: 065

REACTIONS (19)
  - Renal failure [Fatal]
  - Renal impairment [Unknown]
  - Dialysis [Unknown]
  - Kidney small [Unknown]
  - Urinary tract infection [Fatal]
  - Cerebrovascular accident [Fatal]
  - Chronic kidney disease [Unknown]
  - Acute kidney injury [Unknown]
  - Nephrogenic anaemia [Unknown]
  - Dysuria [Unknown]
  - Nocturia [Unknown]
  - Coronary artery disease [Fatal]
  - Hypertension [Fatal]
  - End stage renal disease [Unknown]
  - Urine flow decreased [Unknown]
  - Sepsis [Fatal]
  - Renal cyst [Unknown]
  - Urinary incontinence [Unknown]
  - Nephropathy [Unknown]
